FAERS Safety Report 5314713-0 (Version None)
Quarter: 2007Q2

REPORT INFORMATION
  Report Type: 
  Country: None (occurrence: None)
  Receive Date: 20070427
  Receipt Date: 20070419
  Transmission Date: 20071010
  Serious: Yes (Hospitalization)
  Sender: FDA-Public Use
  Company Number: GXKR2007GB03595

PATIENT
  Age: 55 Year
  Sex: Male
  Weight: 85 kg

DRUGS (3)
  1. CO-CODAMOL (NGX)(ACETAMINOPHEN (PARACETAMOL), CODEINE PHOSPHATE) UNKNO [Suspect]
     Indication: PAIN IN EXTREMITY
     Dosage: 2 DF, QID, ORAL
     Route: 048
     Dates: start: 20070331, end: 20070402
  2. SINEMET [Concomitant]
  3. SINEMET CR [Concomitant]

REACTIONS (2)
  - CONDITION AGGRAVATED [None]
  - PARKINSONISM [None]
